FAERS Safety Report 14967119 (Version 1)
Quarter: 2018Q2

REPORT INFORMATION
  Report Type: Spontaneous
  Country: BR (occurrence: BR)
  Receive Date: 20180604
  Receipt Date: 20180604
  Transmission Date: 20180711
  Serious: No
  Sender: FDA-Public Use
  Company Number: BR-CHEPLA-1933610

PATIENT

DRUGS (1)
  1. VESANOID [Suspect]
     Active Substance: TRETINOIN
     Indication: PRODUCT USED FOR UNKNOWN INDICATION
     Route: 065

REACTIONS (2)
  - Drug administration error [Unknown]
  - No adverse event [Unknown]
